FAERS Safety Report 11241961 (Version 1)
Quarter: 2015Q3

REPORT INFORMATION
  Report Type: Other
  Country: GB (occurrence: GB)
  Receive Date: 20150706
  Receipt Date: 20150706
  Transmission Date: 20151125
  Serious: Yes (Other)
  Sender: FDA-Public Use
  Company Number: GB-MYLANLABS-2015M1021202

PATIENT

DRUGS (9)
  1. ASPIRIN                            /00002701/ [Concomitant]
     Active Substance: ASPIRIN
     Dosage: 75 MG, UNK
  2. RAMIPRIL. [Concomitant]
     Active Substance: RAMIPRIL
     Dosage: 2.5 MG, UNK
  3. TICAGRELOR [Concomitant]
     Active Substance: TICAGRELOR
     Dosage: UNK
  4. BISOPROLOL FUMARATE. [Concomitant]
     Active Substance: BISOPROLOL FUMARATE
     Dosage: 1.25 MG, UNK
  5. ATORVASTATIN [Suspect]
     Active Substance: ATORVASTATIN
     Dosage: 20 MG, UNK
     Route: 048
     Dates: end: 20150515
  6. AMLODIPINE [Concomitant]
     Active Substance: AMLODIPINE BESYLATE
     Dosage: UNK
  7. ATORVASTATIN [Suspect]
     Active Substance: ATORVASTATIN
     Indication: BLOOD CHOLESTEROL INCREASED
     Dosage: 80 MG, UNK
     Route: 048
     Dates: start: 20131115
  8. ATORVASTATIN [Suspect]
     Active Substance: ATORVASTATIN
     Dosage: 10 MG, UNK
     Route: 048
  9. CETRABEN EMOLLIENT CREAM [Concomitant]
     Indication: ECZEMA
     Dosage: UNK

REACTIONS (8)
  - Headache [Recovered/Resolved]
  - Arthralgia [Recovering/Resolving]
  - Abnormal weight gain [Recovering/Resolving]
  - Gynaecomastia [Recovered/Resolved]
  - Myalgia [Recovering/Resolving]
  - Fatigue [Unknown]
  - Joint lock [Recovering/Resolving]
  - Erectile dysfunction [Recovered/Resolved]

NARRATIVE: CASE EVENT DATE: 20140101
